FAERS Safety Report 15770015 (Version 17)
Quarter: 2020Q4

REPORT INFORMATION
  Report Type: Report from Study
  Country: FR (occurrence: FR)
  Receive Date: 20181228
  Receipt Date: 20201119
  Transmission Date: 20210113
  Serious: Yes (Death, Hospitalization)
  Sender: FDA-Public Use
  Company Number: FR-EISAI MEDICAL RESEARCH-EC-2018-049734

PATIENT
  Age: 77 Year
  Sex: Female
  Weight: 55 kg

DRUGS (18)
  1. PEMBROLIZUMAB. [Suspect]
     Active Substance: PEMBROLIZUMAB
     Indication: ENDOMETRIAL CANCER
     Route: 041
     Dates: start: 20181128, end: 20181128
  2. PEMBROLIZUMAB. [Suspect]
     Active Substance: PEMBROLIZUMAB
     Route: 041
     Dates: start: 20181219, end: 20181219
  3. UVEDOSE [Concomitant]
     Active Substance: CHOLECALCIFEROL
     Dates: start: 20181007
  4. BROMAZEPAM [Concomitant]
     Active Substance: BROMAZEPAM
     Dates: start: 20181007
  5. LENVATINIB [Suspect]
     Active Substance: LENVATINIB
     Indication: ENDOMETRIAL CANCER
     Route: 048
     Dates: start: 20181128, end: 20181220
  6. CETIRIZINE HYDROCHLORIDE. [Concomitant]
     Active Substance: CETIRIZINE HYDROCHLORIDE
     Dates: start: 20181007
  7. ACETAMINOPHEN. [Concomitant]
     Active Substance: ACETAMINOPHEN
     Dates: start: 20181007
  8. CARDENSIEL [Concomitant]
     Active Substance: BISOPROLOL FUMARATE
     Dates: start: 20181116, end: 20190620
  9. PEMBROLIZUMAB. [Suspect]
     Active Substance: PEMBROLIZUMAB
     Route: 041
     Dates: start: 20190109, end: 20190109
  10. KARDEGIC [Concomitant]
     Active Substance: ASPIRIN DL-LYSINE
     Dates: start: 20181007, end: 20190620
  11. INEXIUM [Concomitant]
     Active Substance: ESOMEPRAZOLE
     Dates: start: 201802
  12. MOVICOL [Concomitant]
     Active Substance: POLYETHYLENE GLYCOL 3350\POTASSIUM CHLORIDE\SODIUM BICARBONATE\SODIUM CHLORIDE
     Dates: start: 20181212, end: 20181228
  13. EZETROL [Concomitant]
     Active Substance: EZETIMIBE
     Dates: start: 20181007
  14. LENVATINIB [Suspect]
     Active Substance: LENVATINIB
     Route: 065
     Dates: start: 20190117
  15. PEMBROLIZUMAB. [Suspect]
     Active Substance: PEMBROLIZUMAB
     Route: 041
     Dates: start: 20190130
  16. ARESTAL [Concomitant]
     Active Substance: LOPERAMIDE OXIDE
     Dates: start: 20181007
  17. FLUVASTATIN SODIUM. [Concomitant]
     Active Substance: FLUVASTATIN SODIUM
     Dates: start: 20181007
  18. DAFALGAN CODEINE [Concomitant]
     Active Substance: ACETAMINOPHEN\CODEINE PHOSPHATE
     Dates: start: 20181007

REACTIONS (3)
  - Hypertension [Recovered/Resolved]
  - Acute coronary syndrome [Recovered/Resolved]
  - Haemorrhage urinary tract [Recovered/Resolved]

NARRATIVE: CASE EVENT DATE: 20181218
